APPROVED DRUG PRODUCT: IBUPROFEN
Active Ingredient: IBUPROFEN
Strength: 40MG/ML
Dosage Form/Route: SUSPENSION/DROPS;ORAL
Application: A079058 | Product #001
Applicant: TRIS PHARMA INC
Approved: Aug 31, 2009 | RLD: No | RS: No | Type: OTC